FAERS Safety Report 5339120-6 (Version None)
Quarter: 2007Q2

REPORT INFORMATION
  Report Type: 
  Country: None (occurrence: None)
  Receive Date: 20070330
  Receipt Date: 20060803
  Transmission Date: 20071010
  Serious: Yes (Other)
  Sender: FDA-Public Use
  Company Number: 2006EN000148

PATIENT
  Age: 12 Year
  Sex: Male
  Weight: 61 kg

DRUGS (2)
  1. ONCASPAR [Suspect]
     Indication: ACUTE LYMPHOCYTIC LEUKAEMIA
     Dosage: 4075 IU, IM
     Route: 030
     Dates: start: 20060516, end: 20060802
  2. ONCASPAR [Suspect]

REACTIONS (7)
  - EYE SWELLING [None]
  - HYPERSENSITIVITY [None]
  - LIP SWELLING [None]
  - PHARYNGEAL OEDEMA [None]
  - SWELLING [None]
  - SWELLING FACE [None]
  - URTICARIA [None]
